FAERS Safety Report 7492368-7 (Version None)
Quarter: 2011Q2

REPORT INFORMATION
  Report Type: 
  Country: None (occurrence: None)
  Receive Date: 20110519
  Receipt Date: 20110428
  Transmission Date: 20111010
  Serious: Yes (Other)
  Sender: FDA-Public Use
  Company Number: US-BAYER-201024408NA

PATIENT
  Age: 17 Year
  Sex: Female
  Weight: 54.422 kg

DRUGS (1)
  1. YAZ [Suspect]
     Indication: CONTRACEPTION
     Dosage: UNK
     Route: 048
     Dates: start: 20080101, end: 20080101

REACTIONS (3)
  - CHOLELITHIASIS [None]
  - GALLBLADDER DISORDER [None]
  - ORGAN FAILURE [None]
